FAERS Safety Report 17730752 (Version 3)
Quarter: 2020Q3

REPORT INFORMATION
  Report Type: Report from Study
  Country: BR (occurrence: BR)
  Receive Date: 20200430
  Receipt Date: 20200917
  Transmission Date: 20201102
  Serious: Yes (Other)
  Sender: FDA-Public Use
  Company Number: NVSC2020BR052770

PATIENT
  Age: 54 Year
  Sex: Female
  Weight: 75 kg

DRUGS (20)
  1. COSENTYX [Suspect]
     Active Substance: SECUKINUMAB
     Dosage: UNK
     Route: 065
     Dates: start: 20200219
  2. COSENTYX [Suspect]
     Active Substance: SECUKINUMAB
     Dosage: 300 MG, UNKNOWN (STOPPED FOUR MONTHS AGO)
     Route: 065
  3. NIMESULIDE [Concomitant]
     Active Substance: NIMESULIDE
     Indication: PRODUCT USED FOR UNKNOWN INDICATION
     Dosage: UNK
     Route: 065
  4. METHADONE [Concomitant]
     Active Substance: METHADONE HYDROCHLORIDE
     Indication: PAIN
     Dosage: 10 MG, QD, 1 TABLET OF 10 MG AT NIGHT
     Route: 048
     Dates: start: 2017
  5. PREGABALIN. [Concomitant]
     Active Substance: PREGABALIN
     Indication: FIBROMYALGIA
     Dosage: 50 MG, BID
     Route: 048
     Dates: start: 2017
  6. VIT D [Concomitant]
     Active Substance: VITAMIN D NOS
     Indication: VITAMIN D
     Dosage: UNK, 1 TABLET OF 50 U PER DAY
     Route: 048
     Dates: start: 2017
  7. FOLIC ACID. [Concomitant]
     Active Substance: FOLIC ACID
     Indication: PSORIATIC ARTHROPATHY
     Dosage: UNK, 2 TABLETS OF 5 MG ON SATURDAYS
     Route: 048
     Dates: start: 2018
  8. COSENTYX [Suspect]
     Active Substance: SECUKINUMAB
     Dosage: UNK
     Route: 065
     Dates: start: 20200217
  9. COSENTYX [Suspect]
     Active Substance: SECUKINUMAB
     Dosage: UNK, Q2W, 01 AMPOULE OF 40 MG IN EACH LEG
     Route: 058
     Dates: start: 202004
  10. QUETIAPINE. [Concomitant]
     Active Substance: QUETIAPINE
     Indication: PAIN
     Dosage: UNK, BID, 1 TABLET
     Route: 048
     Dates: start: 2017
  11. PREGABALIN. [Concomitant]
     Active Substance: PREGABALIN
     Indication: ANXIETY
  12. CLONAZEPAM. [Concomitant]
     Active Substance: CLONAZEPAM
     Indication: INSOMNIA
     Dosage: UNK, 2 TABLETS OF 2 MG PER DAY
     Route: 048
     Dates: start: 2017
  13. COSENTYX [Suspect]
     Active Substance: SECUKINUMAB
     Indication: PSORIATIC ARTHROPATHY
     Dosage: 300 MG
     Route: 065
     Dates: start: 20200120
  14. AMOXICILLIN TRIHYDRATE [Suspect]
     Active Substance: AMOXICILLIN
     Indication: PRODUCT USED FOR UNKNOWN INDICATION
     Dosage: 75 MG
     Route: 065
  15. GABAPENTIN. [Concomitant]
     Active Substance: GABAPENTIN
     Indication: PAIN
     Dosage: UNK UNK, TID, 2 TABLETS OF 300 MG
     Route: 048
     Dates: start: 2017
  16. ADALIMUMAB [Concomitant]
     Active Substance: ADALIMUMAB
     Indication: PRODUCT USED FOR UNKNOWN INDICATION
     Dosage: 80 MG
     Route: 065
  17. MORPHINE [Concomitant]
     Active Substance: MORPHINE
     Indication: PAIN
     Dosage: UNK
     Route: 065
  18. METHOTREXATE. [Concomitant]
     Active Substance: METHOTREXATE
     Indication: PSORIATIC ARTHROPATHY
     Dosage: UNK, 8 TABLETS OF 2.5 MG ON FRIDAYS
     Route: 048
     Dates: start: 2018
  19. CODEINE [Concomitant]
     Active Substance: CODEINE
     Indication: PAIN
     Dosage: 10 MG, TID, 1 TABLET OF 10 MG
     Route: 048
     Dates: start: 2017
  20. VENLIFT [Concomitant]
     Active Substance: VENLAFAXINE HYDROCHLORIDE
     Indication: PAIN
     Dosage: UNK
     Route: 065

REACTIONS (15)
  - Fibromyalgia [Unknown]
  - Cough [Recovering/Resolving]
  - Fungal infection [Unknown]
  - Pain [Not Recovered/Not Resolved]
  - Joint swelling [Unknown]
  - Hypersensitivity [Unknown]
  - Arthropathy [Unknown]
  - Ankylosing spondylitis [Unknown]
  - Psoriatic arthropathy [Unknown]
  - Allergic cough [Recovering/Resolving]
  - Tendon dislocation [Recovered/Resolved]
  - Arthralgia [Unknown]
  - Ligament sprain [Recovered/Resolved]
  - Headache [Recovered/Resolved]
  - Dysphonia [Recovering/Resolving]

NARRATIVE: CASE EVENT DATE: 2015
